FAERS Safety Report 10426835 (Version 1)
Quarter: 2014Q3

REPORT INFORMATION
  Report Type: Spontaneous
  Country: CZ (occurrence: CZ)
  Receive Date: 20140903
  Receipt Date: 20140903
  Transmission Date: 20150326
  Serious: Yes (Hospitalization)
  Sender: FDA-Public Use
  Company Number: CZ-TEVA-506102ISR

PATIENT
  Age: 72 Year
  Sex: Female

DRUGS (1)
  1. ATORVASTATIN [Suspect]
     Active Substance: ATORVASTATIN
     Indication: HYPERCHOLESTEROLAEMIA
     Dosage: 40MG PER DAY
     Route: 065

REACTIONS (3)
  - Photosensitivity reaction [Recovering/Resolving]
  - Raynaud^s phenomenon [Recovering/Resolving]
  - Polymyositis [Recovering/Resolving]
